FAERS Safety Report 6035324-8 (Version None)
Quarter: 2009Q1

REPORT INFORMATION
  Report Type: 
  Country: None (occurrence: None)
  Receive Date: 20090108
  Receipt Date: 20081224
  Transmission Date: 20090719
  Serious: Yes (Hospitalization)
  Sender: FDA-Public Use
  Company Number: 110457

PATIENT
  Age: 63 Year
  Sex: Male

DRUGS (8)
  1. NAPROXEN [Suspect]
     Dosage: 500 MG / BID / ORAL
     Route: 048
  2. TENOFOVIR [Suspect]
  3. COCAINE [Suspect]
  4. LAMIVUDINE [Concomitant]
  5. OLANZAPINE [Concomitant]
  6. BUPROPION HCL [Concomitant]
  7. LOPINAVIR AND RITONAVIR [Concomitant]
  8. PAROXETINE HCL [Concomitant]

REACTIONS (6)
  - HAEMATEMESIS [None]
  - HEMIPARESIS [None]
  - PYREXIA [None]
  - RENAL FAILURE ACUTE [None]
  - RHABDOMYOLYSIS [None]
  - THERAPEUTIC AGENT TOXICITY [None]
